FAERS Safety Report 7381138-6 (Version None)
Quarter: 2011Q1

REPORT INFORMATION
  Report Type: 
  Country: None (occurrence: None)
  Receive Date: 20110329
  Receipt Date: 20110201
  Transmission Date: 20110831
  Serious: No
  Sender: FDA-Public Use
  Company Number: US-AMGEN-USASP2011006224

PATIENT
  Age: 72 Year
  Sex: Male

DRUGS (1)
  1. SENSIPAR [Suspect]
     Indication: PARATHYROID TUMOUR BENIGN
     Dosage: UNK
     Dates: start: 20100101, end: 20100101

REACTIONS (2)
  - PAIN [None]
  - BLOOD CALCIUM INCREASED [None]
